FAERS Safety Report 9234688 (Version 2)
Quarter: 2013Q2

REPORT INFORMATION
  Report Type: Spontaneous
  Country: US (occurrence: US)
  Receive Date: 20130416
  Receipt Date: 20130418
  Transmission Date: 20140414
  Serious: No
  Sender: FDA-Public Use
  Company Number: US-TEVA-398104USA

PATIENT
  Age: 48 Year
  Sex: Female
  Weight: 20.88 kg

DRUGS (1)
  1. TREANDA [Suspect]
     Indication: CHRONIC LYMPHOCYTIC LEUKAEMIA
     Dosage: 100MGS/20ML
     Route: 048
     Dates: start: 20130401, end: 20130402

REACTIONS (1)
  - Vein disorder [Unknown]
